FAERS Safety Report 11912881 (Version 1)
Quarter: 2016Q1

REPORT INFORMATION
  Report Type: Spontaneous
  Country: BR (occurrence: BR)
  Receive Date: 20160113
  Receipt Date: 20160113
  Transmission Date: 20160526
  Serious: Yes (Other)
  Sender: FDA-Public Use
  Company Number: BR-ROCHE-1692208

PATIENT
  Sex: Female

DRUGS (2)
  1. XOLAIR [Suspect]
     Active Substance: OMALIZUMAB
     Indication: ASTHMA
     Route: 065
     Dates: end: 201410
  2. XOLAIR [Suspect]
     Active Substance: OMALIZUMAB
     Route: 065
     Dates: start: 201506

REACTIONS (3)
  - Maternal exposure during pregnancy [Unknown]
  - Asthma [Unknown]
  - Stillbirth [Unknown]
